FAERS Safety Report 7252315-X (Version None)
Quarter: 2011Q1

REPORT INFORMATION
  Report Type: 
  Country: None (occurrence: None)
  Receive Date: 20110129
  Receipt Date: 20100311
  Transmission Date: 20110831
  Serious: No
  Sender: FDA-Public Use
  Company Number: PR-ABBOTT-10P-131-0623686-00

PATIENT
  Age: 36 Year
  Sex: Female
  Weight: 113.5 kg

DRUGS (8)
  1. RELAFEN [Concomitant]
     Indication: PAIN
     Route: 048
  2. AMBIEN [Concomitant]
     Indication: EMOTIONAL DISORDER
     Route: 048
  3. NEURONTIN [Concomitant]
     Indication: EMOTIONAL DISORDER
     Route: 048
  4. ABILIFY [Concomitant]
     Indication: EMOTIONAL DISORDER
     Route: 048
  5. HUMIRA [Suspect]
     Indication: RHEUMATOID ARTHRITIS
     Route: 058
  6. WELLBUTRIN [Concomitant]
     Indication: EMOTIONAL DISORDER
     Route: 048
  7. KLONOPIN [Concomitant]
     Indication: EMOTIONAL DISORDER
     Route: 048
  8. NORFLEX [Concomitant]
     Indication: EMOTIONAL DISORDER
     Route: 048

REACTIONS (2)
  - HAEMORRHAGE [None]
  - MENORRHAGIA [None]
